FAERS Safety Report 5792660-8 (Version None)
Quarter: 2008Q2

REPORT INFORMATION
  Report Type: 
  Country: None (occurrence: None)
  Receive Date: 20080624
  Receipt Date: 20080620
  Transmission Date: 20081010
  Serious: Yes (Death, Other)
  Sender: FDA-Public Use
  Company Number: 2006SP004544

PATIENT
  Age: 63 Year
  Sex: Male
  Weight: 54 kg

DRUGS (14)
  1. TEMODAL [Suspect]
     Indication: GLIOBLASTOMA MULTIFORME
     Dosage: 250 MG; QD; PO; 150 MG/M2; QD; PO
     Route: 048
     Dates: start: 20060712, end: 20060716
  2. TEMODAL [Suspect]
     Indication: GLIOBLASTOMA MULTIFORME
     Dosage: 250 MG; QD; PO; 150 MG/M2; QD; PO
     Route: 048
     Dates: start: 20060822, end: 20060826
  3. TEMODAL [Suspect]
     Indication: GLIOBLASTOMA MULTIFORME
     Dosage: 250 MG; QD; PO; 150 MG/M2; QD; PO
     Route: 048
     Dates: start: 20060925, end: 20060929
  4. FERON [Concomitant]
  5. CYMERIN [Concomitant]
  6. TEGRETOL [Concomitant]
  7. EXCEGRAN [Concomitant]
  8. PENTCILLIN [Concomitant]
  9. SULPERAZON [Concomitant]
  10. GLYCEOL [Concomitant]
  11. SOL MEDROL [Concomitant]
  12. UNASYN [Concomitant]
  13. PRODIF [Concomitant]
  14. TAKEPRON OD [Concomitant]

REACTIONS (11)
  - DRUG INEFFECTIVE [None]
  - GENERAL PHYSICAL HEALTH DETERIORATION [None]
  - HYPOALBUMINAEMIA [None]
  - LOSS OF CONSCIOUSNESS [None]
  - LUNG DISORDER [None]
  - MALIGNANT NEOPLASM PROGRESSION [None]
  - PLATELET COUNT DECREASED [None]
  - PNEUMONIA [None]
  - RESPIRATORY FAILURE [None]
  - SHOCK [None]
  - WHITE BLOOD CELL COUNT DECREASED [None]
